FAERS Safety Report 5457148-2 (Version None)
Quarter: 2007Q3

REPORT INFORMATION
  Report Type: 
  Country: None (occurrence: None)
  Receive Date: 20070918
  Receipt Date: 20070905
  Transmission Date: 20080115
  Serious: Yes (Hospitalization, Other)
  Sender: FDA-Public Use
  Company Number: US-SHR-US-2007-002477

PATIENT
  Age: 59 Year
  Sex: Female

DRUGS (1)
  1. BETASERON [Suspect]
     Indication: MULTIPLE SCLEROSIS
     Dosage: 8 MIU, EVERY 2D
     Route: 058
     Dates: start: 19941019

REACTIONS (10)
  - CATHETER SEPSIS [None]
  - CONFUSIONAL STATE [None]
  - FALL [None]
  - FEMUR FRACTURE [None]
  - PELVIC FRACTURE [None]
  - PNEUMONIA [None]
  - THYROID FUNCTION TEST ABNORMAL [None]
  - THYROID NEOPLASM [None]
  - TRANSIENT ISCHAEMIC ATTACK [None]
  - WEIGHT DECREASED [None]
